FAERS Safety Report 6997109 (Version 7)
Quarter: 2018Q4

REPORT INFORMATION
  Report Type: Spontaneous
  Country: JP (occurrence: JP)
  Receive Date: 20090518
  Receipt Date: 20181031
  Transmission Date: 20190205
  Serious: Yes (Hospitalization, Other)
  Sender: FDA-Public Use
  Company Number: PHHY2009JP17722

PATIENT
  Age: 64 Year
  Sex: Male

DRUGS (4)
  1. DIOVAN [Suspect]
     Active Substance: VALSARTAN
     Indication: HYPERTENSION
     Dosage: 80 MG, QD
     Route: 048
     Dates: start: 20070604, end: 20070915
  2. GASTROM [Concomitant]
     Active Substance: ECABET SODIUM
     Indication: GASTRIC ULCER
     Dosage: 1.5 G, UNK
     Route: 048
  3. AMLODIN [Concomitant]
     Active Substance: AMLODIPINE BESYLATE
     Indication: HYPERTENSION
     Dosage: 5 MG, UNK
     Route: 048
     Dates: start: 20070806
  4. GASTER [Concomitant]
     Active Substance: FAMOTIDINE
     Indication: GASTRIC ULCER
     Dosage: 20 MG, UNK
     Route: 048

REACTIONS (15)
  - Interstitial lung disease [Recovered/Resolved]
  - Cell marker increased [Recovering/Resolving]
  - Lymphocyte stimulation test positive [Recovered/Resolved]
  - Cough [Recovered/Resolved]
  - Idiopathic pulmonary fibrosis [Recovered/Resolved]
  - Bronchiectasis [Unknown]
  - Alveolitis [Recovering/Resolving]
  - Dyspnoea exertional [Recovered/Resolved]
  - Lung consolidation [Unknown]
  - Blood pressure inadequately controlled [Unknown]
  - Pulmonary toxicity [Recovering/Resolving]
  - Lung infiltration [Recovered/Resolved]
  - Hypoxia [Recovering/Resolving]
  - Surfactant protein increased [Recovering/Resolving]
  - Pneumonitis [Recovering/Resolving]

NARRATIVE: CASE EVENT DATE: 200708
